FAERS Safety Report 8576345-0 (Version None)
Quarter: 2012Q3

REPORT INFORMATION
  Report Type: 
  Country: None (occurrence: None)
  Receive Date: 20120807
  Receipt Date: 20070527
  Transmission Date: 20120928
  Serious: Yes (Other)
  Sender: FDA-Public Use
  Company Number: CO-PFIZER INC-2012189378

PATIENT
  Age: 63 Year
  Sex: Male

DRUGS (3)
  1. LIPITOR [Suspect]
     Dosage: 10 MG EVERY 24 HOURS
  2. ACCURETIC [Suspect]
     Dosage: 20 MG/ 12.5 MG, EVERY 24 HOURS
  3. AMLODIPINE [Concomitant]
     Dosage: 5 MG, 1X/DAY

REACTIONS (4)
  - LEUKOCYTURIA [None]
  - HYPERTENSIVE EMERGENCY [None]
  - APHASIA [None]
  - URINARY TRACT INFECTION [None]
